FAERS Safety Report 10396010 (Version 2)
Quarter: 2014Q3

REPORT INFORMATION
  Report Type: Spontaneous
  Country: IR (occurrence: IR)
  Receive Date: 20140820
  Receipt Date: 20140822
  Transmission Date: 20150326
  Serious: Yes (Death, Hospitalization)
  Sender: FDA-Public Use
  Company Number: PHHY2014IR098827

PATIENT
  Age: 34 Year
  Sex: Female

DRUGS (10)
  1. AZITHROMYCIN [Suspect]
     Active Substance: AZITHROMYCIN ANHYDROUS
     Indication: VAGINAL HAEMORRHAGE
  2. CYCLOPHOSPHAMIDE. [Suspect]
     Active Substance: CYCLOPHOSPHAMIDE
  3. ACTINOMYCINES [Suspect]
     Active Substance: UNSPECIFIED INGREDIENT
  4. ETOPOSIDE. [Suspect]
     Active Substance: ETOPOSIDE
  5. ANTIBIOTICS [Suspect]
     Active Substance: UNSPECIFIED INGREDIENT
  6. METRONIDAZOLE. [Suspect]
     Active Substance: METRONIDAZOLE
     Indication: VAGINAL HAEMORRHAGE
  7. OXYTOCIN. [Suspect]
     Active Substance: OXYTOCIN
     Indication: VAGINAL HAEMORRHAGE
  8. METHOTREXATE [Suspect]
     Active Substance: METHOTREXATE
  9. VINCRISTINE [Suspect]
     Active Substance: VINCRISTINE
  10. METROGEN [Suspect]
     Active Substance: METRONIDAZOLE
     Indication: VAGINAL HAEMORRHAGE

REACTIONS (15)
  - Respiratory rate increased [None]
  - Haemoglobin decreased [None]
  - Muscle haemorrhage [None]
  - Depressed level of consciousness [None]
  - Mesenteric haemorrhage [None]
  - Shock [None]
  - Retroperitoneal haemorrhage [None]
  - Drug ineffective [Unknown]
  - Maternal exposure during pregnancy [None]
  - Blood pressure decreased [None]
  - Death [Fatal]
  - Pulmonary mass [None]
  - Vaginal haemorrhage [Unknown]
  - Rectal haemorrhage [None]
  - Heart rate increased [None]
